FAERS Safety Report 21830744 (Version 1)
Quarter: 2023Q1

REPORT INFORMATION
  Report Type: Spontaneous
  Country: US (occurrence: None)
  Receive Date: 20230106
  Receipt Date: 20230106
  Transmission Date: 20230418
  Serious: No
  Sender: FDA-Public Use
  Company Number: None

PATIENT
  Age: 67 Year
  Sex: Female
  Weight: 73.48 kg

DRUGS (12)
  1. LENALIDOMIDE [Suspect]
     Active Substance: LENALIDOMIDE
     Indication: Plasma cell myeloma
     Dosage: OTHER FREQUENCY : 14DON7DOFF;?
     Route: 048
     Dates: start: 202211
  2. ASPIRIN [Concomitant]
  3. CALCITRIOL [Concomitant]
  4. DEXAMETHASONE [Concomitant]
  5. CALCIUM [Concomitant]
     Active Substance: CALCIUM
  6. LISINOPRIL [Concomitant]
  7. MILK OF MAGNESIA [Concomitant]
  8. VITAMIN B12 [Concomitant]
  9. SYNTHROID [Concomitant]
  10. VALACYCLOVIR [Concomitant]
  11. VITAMIN C [Concomitant]
     Active Substance: ASCORBIC ACID
  12. ZINC [Concomitant]

REACTIONS (3)
  - Hypotension [None]
  - Syncope [None]
  - Therapy interrupted [None]
